FAERS Safety Report 9396006 (Version 1)
Quarter: 2013Q3

REPORT INFORMATION
  Report Type: Spontaneous
  Country: IN (occurrence: None)
  Receive Date: 20130708
  Receipt Date: 20130708
  Transmission Date: 20140515
  Serious: Yes (Hospitalization, Other)
  Sender: FDA-Public Use
  Company Number: 2013P1010813

PATIENT
  Age: 63 Year
  Sex: Male

DRUGS (5)
  1. CHLOROQUINE [Suspect]
     Indication: HEPATIC AMOEBIASIS
     Route: 048
  2. CHLOROQUINE [Suspect]
     Indication: AMOEBIC DYSENTERY
     Route: 048
  3. PARACETAMOL [Concomitant]
  4. PIPERACILLINTAZOBACTAM [Concomitant]
  5. METRONIDAZOLE [Concomitant]

REACTIONS (12)
  - Foaming at mouth [None]
  - Loss of consciousness [None]
  - Tonic convulsion [None]
  - Ventricular tachycardia [None]
  - Sepsis [None]
  - Hypokalaemia [None]
  - Electrocardiogram T wave inversion [None]
  - Prothrombin time prolonged [None]
  - Electrocardiogram QT prolonged [None]
  - Electrocardiogram QT prolonged [None]
  - Alanine aminotransferase increased [None]
  - Blood albumin decreased [None]
